FAERS Safety Report 6456543-2 (Version None)
Quarter: 2009Q4

REPORT INFORMATION
  Report Type: 
  Country: None (occurrence: None)
  Receive Date: 20091119
  Receipt Date: 20091106
  Transmission Date: 20100525
  Serious: Yes (Death, Other)
  Sender: FDA-Public Use
  Company Number: CLOF-1000724

PATIENT
  Age: 4 Year
  Sex: Male
  Weight: 16.9 kg

DRUGS (3)
  1. CLOLAR [Suspect]
     Indication: T-CELL LYMPHOMA REFRACTORY
     Dosage: 40 MCG/M2, QDX5, INTRAVENOUS
     Route: 042
     Dates: start: 20090904, end: 20090909
  2. ETOPOSIDE [Suspect]
     Indication: T-CELL LYMPHOMA REFRACTORY
     Dosage: 100 MG/M2
     Dates: start: 20090904, end: 20090909
  3. CYCLOPHOSPHAMIDE [Suspect]
     Indication: T-CELL LYMPHOMA REFRACTORY
     Dosage: 440 MG/M2
     Dates: start: 20090904, end: 20090909

REACTIONS (9)
  - ALANINE AMINOTRANSFERASE INCREASED [None]
  - CONVULSION [None]
  - HEPATIC ENZYME INCREASED [None]
  - KLEBSIELLA SEPSIS [None]
  - MEDIASTINUM NEOPLASM [None]
  - NEOPLASM PROGRESSION [None]
  - NEUTROPENIC COLITIS [None]
  - PNEUMATOSIS INTESTINALIS [None]
  - RESPIRATORY DISTRESS [None]
